FAERS Safety Report 5499622-9 (Version None)
Quarter: 2007Q4

REPORT INFORMATION
  Report Type: 
  Country: None (occurrence: None)
  Receive Date: 20071026
  Receipt Date: 20070806
  Transmission Date: 20080405
  Serious: Yes (Hospitalization, Disabling)
  Sender: FDA-Public Use
  Company Number: US-SANOFI-SYNTHELABO-A03200702101

PATIENT
  Sex: Female
  Weight: 56.7 kg

DRUGS (2)
  1. AMBIEN [Suspect]
     Indication: INSOMNIA
     Route: 048
     Dates: start: 20000101, end: 20060501
  2. AMBIEN [Suspect]
     Route: 048
     Dates: start: 20060701, end: 20070109

REACTIONS (9)
  - AMNESIA [None]
  - CONTUSION [None]
  - EATING DISORDER [None]
  - FALL [None]
  - LIMB INJURY [None]
  - SKIN LACERATION [None]
  - SOMNAMBULISM [None]
  - UPPER LIMB FRACTURE [None]
  - WOUND HAEMORRHAGE [None]
